FAERS Safety Report 5020304-1 (Version None)
Quarter: 2006Q2

REPORT INFORMATION
  Report Type: 
  Country: None (occurrence: None)
  Receive Date: 20060601
  Receipt Date: 20060519
  Transmission Date: 20061013
  Serious: Yes (Hospitalization)
  Sender: FDA-Public Use
  Company Number: 02100-JPN-06-0237

PATIENT
  Age: 77 Year
  Sex: Male

DRUGS (4)
  1. CILOSTAZOL [Suspect]
     Indication: LACUNAR INFARCTION
     Dosage: 200 MG ORAL
     Route: 048
     Dates: start: 20041207, end: 20050126
  2. OZAGREL SODIUM [Concomitant]
  3. EDARAVONE [Concomitant]
  4. TOCOPHEROL CONCENTRATE CAP [Concomitant]

REACTIONS (1)
  - LARGE INTESTINE CARCINOMA [None]
